FAERS Safety Report 20230861 (Version 1)
Quarter: 2021Q4

REPORT INFORMATION
  Report Type: Spontaneous
  Country: US (occurrence: US)
  Receive Date: 20211227
  Receipt Date: 20211227
  Transmission Date: 20220304
  Serious: No
  Sender: FDA-Public Use
  Company Number: US-JNJFOC-20211222031

PATIENT
  Sex: Female

DRUGS (1)
  1. TYLENOL [Suspect]
     Active Substance: ACETAMINOPHEN
     Indication: Thyroid disorder
     Dosage: 2 TABLETS OF 500MG TYLENOL AFTER BEING RELEASED FROM THE HOSPITAL IN THE MORNING AND ONE MORE DOSE L
     Route: 065
     Dates: start: 20211130

REACTIONS (2)
  - Product use in unapproved indication [Unknown]
  - Off label use [Unknown]

NARRATIVE: CASE EVENT DATE: 20211130
